FAERS Safety Report 20066770 (Version 1)
Quarter: 2021Q4

REPORT INFORMATION
  Report Type: Spontaneous
  Country: IN (occurrence: IN)
  Receive Date: 20211115
  Receipt Date: 20211115
  Transmission Date: 20220303
  Serious: Yes (Hospitalization, Other)
  Sender: FDA-Public Use
  Company Number: IN-EPICPHARMA-IN-2021EPCLIT01176

PATIENT
  Age: 46 Year
  Sex: Male

DRUGS (2)
  1. PHENYTOIN [Suspect]
     Active Substance: PHENYTOIN
     Indication: Partial seizures
     Route: 048
  2. PHENYTOIN [Suspect]
     Active Substance: PHENYTOIN
     Route: 048

REACTIONS (4)
  - Sinus arrest [Recovering/Resolving]
  - Bradycardia [Recovering/Resolving]
  - Abdominal distension [Recovering/Resolving]
  - Dyspnoea [Recovering/Resolving]
